FAERS Safety Report 6810353-2 (Version None)
Quarter: 2010Q2

REPORT INFORMATION
  Report Type: 
  Country: None (occurrence: None)
  Receive Date: 20100630
  Receipt Date: 20100617
  Transmission Date: 20101027
  Serious: Yes (Other)
  Sender: FDA-Public Use
  Company Number: ES-JNJFOC-20100606517

PATIENT
  Age: 50 Year
  Sex: Female

DRUGS (4)
  1. DARUNAVIR [Suspect]
     Indication: HIV INFECTION
  2. ETRAVIRINE [Suspect]
     Indication: HIV INFECTION
  3. RITONAVIR [Concomitant]
     Indication: HIV INFECTION
  4. RALTEGRAVIR [Concomitant]
     Indication: HIV INFECTION

REACTIONS (3)
  - ABDOMINAL DISTENSION [None]
  - RASH [None]
  - SWELLING FACE [None]
